FAERS Safety Report 7653039-7 (Version None)
Quarter: 2011Q3

REPORT INFORMATION
  Report Type: 
  Country: None (occurrence: None)
  Receive Date: 20110803
  Receipt Date: 20110727
  Transmission Date: 20111222
  Serious: Yes (Other)
  Sender: FDA-Public Use
  Company Number: PHHY2011ES67805

PATIENT
  Age: 22 Year
  Sex: Female

DRUGS (2)
  1. CETIRIZINE HCL [Suspect]
     Indication: ALLERGIC SINUSITIS
     Dosage: 10 MG, QD
  2. PYRIDOSTIGMINE BROMIDE [Concomitant]

REACTIONS (6)
  - DIPLOPIA [None]
  - APHASIA [None]
  - NASAL DISORDER [None]
  - FACIAL PARESIS [None]
  - ASTHENIA [None]
  - MYASTHENIA GRAVIS [None]
